FAERS Safety Report 10216763 (Version 1)
Quarter: 2014Q2

REPORT INFORMATION
  Report Type: Spontaneous
  Country: DE (occurrence: DE)
  Receive Date: 20140604
  Receipt Date: 20140604
  Transmission Date: 20141212
  Serious: Yes (Other)
  Sender: FDA-Public Use
  Company Number: DE-PFIZER INC-2014149640

PATIENT
  Age: 30 Year
  Sex: Female

DRUGS (1)
  1. LEIOS [Suspect]
     Dosage: UNK

REACTIONS (1)
  - Urinary tract infection [Unknown]
